FAERS Safety Report 12590015 (Version 1)
Quarter: 2016Q3

REPORT INFORMATION
  Report Type: Spontaneous
  Country: US (occurrence: US)
  Receive Date: 20160725
  Receipt Date: 20160725
  Transmission Date: 20161109
  Serious: Yes (Life-Threatening, Hospitalization, Other)
  Sender: FDA-Public Use
  Company Number: US-BAYER-2016-140911

PATIENT
  Age: 72 Year
  Sex: Male
  Weight: 85.6 kg

DRUGS (6)
  1. METOPROLOL. [Concomitant]
     Active Substance: METOPROLOL
  2. RIVAROXABAN [Suspect]
     Active Substance: RIVAROXABAN
     Indication: ATRIAL FIBRILLATION
  3. ACETYLSALICYLIC ACID({=100 MG) [Suspect]
     Active Substance: ASPIRIN
     Dosage: 81 MG
  4. AMIODARONE [Suspect]
     Active Substance: AMIODARONE
  5. PRAVASTATIN. [Concomitant]
     Active Substance: PRAVASTATIN
  6. RIVAROXABAN [Suspect]
     Active Substance: RIVAROXABAN
     Indication: CEREBROVASCULAR ACCIDENT PROPHYLAXIS
     Dosage: 20 MG

REACTIONS (6)
  - Cerebral haematoma [Recovered/Resolved with Sequelae]
  - Seizure [Recovered/Resolved]
  - Brain oedema [Recovering/Resolving]
  - Prescribed overdose [None]
  - Drug interaction [None]
  - Labelled drug-drug interaction medication error [None]
